FAERS Safety Report 4561631-1 (Version None)
Quarter: 2005Q1

REPORT INFORMATION
  Report Type: 
  Country: None (occurrence: None)
  Receive Date: 20050126
  Receipt Date: 20050110
  Transmission Date: 20050727
  Serious: Yes (Other)
  Sender: FDA-Public Use
  Company Number: NL-GLAXOSMITHKLINE-B0364336A

PATIENT
  Age: 63 Year
  Sex: Male

DRUGS (2)
  1. ROPINIROLE HYDROCHLORIDE [Suspect]
     Indication: PARKINSON'S DISEASE
     Dosage: 9MG PER DAY
     Route: 065
     Dates: start: 20040401
  2. HYGROTON [Concomitant]
     Indication: DRUG USE FOR UNKNOWN INDICATION
     Dosage: 12.5MG PER DAY
     Route: 065

REACTIONS (3)
  - DRUG INEFFECTIVE [None]
  - NAUSEA [None]
  - SLEEP ATTACKS [None]
